FAERS Safety Report 19587295 (Version 1)
Quarter: 2021Q3

REPORT INFORMATION
  Report Type: Spontaneous
  Country: US (occurrence: US)
  Receive Date: 20210720
  Receipt Date: 20210720
  Transmission Date: 20211014
  Serious: No
  Sender: FDA-Public Use
  Company Number: None

PATIENT
  Age: 63 Year
  Sex: Male
  Weight: 100.11 kg

DRUGS (2)
  1. PIOGLITAZONE (PIOGLITAZONE HCL 15MG TAB) [Suspect]
     Active Substance: PIOGLITAZONE
     Indication: DIABETES MELLITUS
     Route: 048
     Dates: start: 20181119, end: 20190225
  2. INSULIN (INSULIN, GLARGINE, HUMAN 100 UNT/ML INJ) [Suspect]
     Active Substance: INSULIN GLARGINE
     Indication: DIABETES MELLITUS
     Route: 058
     Dates: start: 20150213

REACTIONS (1)
  - Weight increased [None]

NARRATIVE: CASE EVENT DATE: 20190101
